FAERS Safety Report 4900320-8 (Version None)
Quarter: 2006Q1

REPORT INFORMATION
  Report Type: 
  Country: None (occurrence: None)
  Receive Date: 20060203
  Receipt Date: 20060201
  Transmission Date: 20060701
  Serious: Yes (Hospitalization)
  Sender: FDA-Public Use
  Company Number: US-GLAXOSMITHKLINE-A0591921A

PATIENT
  Age: 77 Year
  Sex: Male

DRUGS (5)
  1. AVANDIA [Suspect]
     Indication: DIABETES MELLITUS NON-INSULIN-DEPENDENT
     Route: 048
  2. METFORMIN [Concomitant]
  3. ANTIDIABETIC (UNSPECIFIED) [Concomitant]
  4. ANTI-CHOLESTEROL MEDICATION [Concomitant]
  5. HEART MEDICATION [Concomitant]

REACTIONS (6)
  - ANAEMIA [None]
  - AUTOIMMUNE DISORDER [None]
  - CARDIAC FAILURE CONGESTIVE [None]
  - FLUID RETENTION [None]
  - RED BLOOD CELL SEDIMENTATION RATE INCREASED [None]
  - WEIGHT INCREASED [None]
